FAERS Safety Report 11038583 (Version 7)
Quarter: 2016Q2

REPORT INFORMATION
  Report Type: Spontaneous
  Country: US (occurrence: US)
  Receive Date: 20150416
  Receipt Date: 20160502
  Transmission Date: 20160815
  Serious: Yes (Other)
  Sender: FDA-Public Use
  Company Number: US-PFIZER INC-2015125539

PATIENT
  Age: 63 Year
  Sex: Female
  Weight: 79 kg

DRUGS (12)
  1. SUTENT [Suspect]
     Active Substance: SUNITINIB MALATE
     Dosage: 37.5-50 MG/DAY FOR 2-3 WEEKS/MONTH)
     Route: 048
  2. VITAMIN E [Concomitant]
     Active Substance: .ALPHA.-TOCOPHEROL
     Dosage: UNK
  3. VITAMIN D [Concomitant]
     Active Substance: CHOLECALCIFEROL
     Dosage: UNK
  4. SUTENT [Suspect]
     Active Substance: SUNITINIB MALATE
     Indication: PANCREATIC NEUROENDOCRINE TUMOUR METASTATIC
     Dosage: 12.5 MG, 3X/DAY
     Route: 048
     Dates: start: 20121126
  5. SUTENT [Suspect]
     Active Substance: SUNITINIB MALATE
     Dosage: 37.5 MG CAPSULES ONE MONTH AND 50 MG ANOTHER MONTH
     Route: 048
     Dates: start: 201304
  6. VITAMIN B12 [Concomitant]
     Active Substance: CYANOCOBALAMIN
     Dosage: UNK, MONTHLY
  7. GABAPENTIN. [Concomitant]
     Active Substance: GABAPENTIN
     Dosage: UNK
  8. SANDOSTATIN [Concomitant]
     Active Substance: OCTREOTIDE ACETATE
     Dosage: UNK
  9. SYNTHROID [Concomitant]
     Active Substance: LEVOTHYROXINE SODIUM
     Dosage: UNK
  10. LASIX [Concomitant]
     Active Substance: FUROSEMIDE
     Dosage: UNK
  11. PROMETHAZINE [Concomitant]
     Active Substance: PROMETHAZINE\PROMETHAZINE HYDROCHLORIDE
     Dosage: UNK
  12. ZOLOFT [Concomitant]
     Active Substance: SERTRALINE HYDROCHLORIDE
     Dosage: UNK

REACTIONS (46)
  - Nausea [Not Recovered/Not Resolved]
  - Vomiting [Unknown]
  - Dyspepsia [Unknown]
  - Paraesthesia [Unknown]
  - Skin disorder [Unknown]
  - Feeling cold [Unknown]
  - Yellow skin [Unknown]
  - Skin discolouration [Unknown]
  - Hypoaesthesia [Unknown]
  - Neuropathy peripheral [Unknown]
  - Tongue blistering [Unknown]
  - Drooling [Unknown]
  - Infection [Unknown]
  - Decreased appetite [Unknown]
  - Fluid overload [Unknown]
  - Subcutaneous abscess [Unknown]
  - Pain in extremity [Unknown]
  - Tooth fracture [Unknown]
  - Asthenia [Unknown]
  - Somnolence [Unknown]
  - Tooth disorder [Unknown]
  - Eyelid disorder [Unknown]
  - Cardiac failure [Unknown]
  - Eye swelling [Unknown]
  - Gastrooesophageal reflux disease [Unknown]
  - Oral pain [Unknown]
  - Hypothyroidism [Unknown]
  - Dry mouth [Unknown]
  - Dyspnoea [Unknown]
  - Eye colour change [Unknown]
  - Fatigue [Unknown]
  - Weight decreased [Unknown]
  - Diarrhoea [Unknown]
  - Hair colour changes [Unknown]
  - Hair texture abnormal [Unknown]
  - Vertigo [Unknown]
  - Hand-foot-and-mouth disease [Unknown]
  - Oedema [Unknown]
  - Abdominal pain [Unknown]
  - Swelling face [Unknown]
  - Blood calcium decreased [Unknown]
  - Haemorrhagic diathesis [Unknown]
  - Oedema peripheral [Unknown]
  - Oral mucosal blistering [Unknown]
  - Blister [Unknown]
  - Malaise [Unknown]

NARRATIVE: CASE EVENT DATE: 201507
